FAERS Safety Report 10771239 (Version 1)
Quarter: 2015Q1

REPORT INFORMATION
  Report Type: Spontaneous
  Country: US (occurrence: US)
  Receive Date: 20150206
  Receipt Date: 20150206
  Transmission Date: 20150721
  Serious: Yes (Other)
  Sender: FDA-Public Use
  Company Number: US-TEVA-539195USA

PATIENT
  Age: 28 Year
  Sex: Female

DRUGS (1)
  1. COPAXONE [Suspect]
     Active Substance: GLATIRAMER ACETATE
     Indication: RELAPSING-REMITTING MULTIPLE SCLEROSIS
     Dosage: DOSE AND FREQUENCY NOT PROVIDED

REACTIONS (8)
  - Pain [Unknown]
  - Hypoaesthesia [Unknown]
  - Suicidal behaviour [Unknown]
  - Optic neuritis [Unknown]
  - Speech disorder [Unknown]
  - Multiple sclerosis [Unknown]
  - Fatigue [Unknown]
  - Amnesia [Unknown]
